FAERS Safety Report 12531339 (Version 4)
Quarter: 2016Q3

REPORT INFORMATION
  Report Type: Report from Study
  Country: MX (occurrence: MX)
  Receive Date: 20160706
  Receipt Date: 20160928
  Transmission Date: 20161109
  Serious: Yes (Hospitalization, Other)
  Sender: FDA-Public Use
  Company Number: PHHY2016MX087747

PATIENT
  Age: 21 Year
  Sex: Male
  Weight: 72 kg

DRUGS (5)
  1. TEGRETOL [Suspect]
     Active Substance: CARBAMAZEPINE
     Indication: SEIZURE
     Dosage: 1 DF, QHS
     Route: 048
     Dates: start: 2010
  2. RINELON [Concomitant]
     Indication: PRODUCT USED FOR UNKNOWN INDICATION
     Route: 065
  3. TEGRETOL [Suspect]
     Active Substance: CARBAMAZEPINE
     Indication: MENINGIOMA
  4. ALBUTEROL. [Concomitant]
     Active Substance: ALBUTEROL
     Indication: PRODUCT USED FOR UNKNOWN INDICATION
     Route: 055
  5. STERIMAR [Concomitant]
     Active Substance: SEA WATER
     Indication: PRODUCT USED FOR UNKNOWN INDICATION
     Route: 065

REACTIONS (10)
  - Cardiomegaly [Unknown]
  - Hypoxia [Recovered/Resolved]
  - Tachycardia [Not Recovered/Not Resolved]
  - Seizure [Recovered/Resolved]
  - Seizure [Unknown]
  - Mouth breathing [Unknown]
  - Dyspnoea [Not Recovered/Not Resolved]
  - Vomiting [Recovered/Resolved]
  - Seizure [Recovered/Resolved]
  - Seizure [Recovered/Resolved]

NARRATIVE: CASE EVENT DATE: 2012
